FAERS Safety Report 8117731-2 (Version None)
Quarter: 2012Q1

REPORT INFORMATION
  Report Type: 
  Country: None (occurrence: None)
  Receive Date: 20120202
  Receipt Date: 20120126
  Transmission Date: 20120608
  Serious: Yes (Hospitalization)
  Sender: FDA-Public Use
  Company Number: 2012ST000114

PATIENT
  Age: 15 Year
  Sex: Male

DRUGS (3)
  1. NEUPOGEN [Suspect]
     Indication: PRODUCT USED FOR UNKNOWN INDICATION
  2. MATULANE [Suspect]
     Indication: HODGKIN'S DISEASE
     Dosage: 150 MG;QD;PO 200 MG;BIW;PO
     Route: 048
     Dates: start: 20111222
  3. MATULANE [Suspect]
     Indication: HODGKIN'S DISEASE
     Dosage: 150 MG;QD;PO 200 MG;BIW;PO
     Route: 048
     Dates: start: 20111222

REACTIONS (1)
  - INJECTION SITE PAIN [None]
